FAERS Safety Report 9245292 (Version 1)
Quarter: 2013Q2

REPORT INFORMATION
  Report Type: Spontaneous
  Country: DE (occurrence: DE)
  Receive Date: 20130422
  Receipt Date: 20130422
  Transmission Date: 20140414
  Serious: Yes (Hospitalization)
  Sender: FDA-Public Use
  Company Number: DE-ALEXION PHARMACEUTICALS INC.-A201300834

PATIENT
  Age: 51 Year
  Sex: Male

DRUGS (5)
  1. SOLIRIS 300MG [Suspect]
     Indication: HAEMOLYTIC URAEMIC SYNDROME
     Dosage: 900 MG, UNK
     Route: 042
     Dates: start: 20120817, end: 20120917
  2. SOLIRIS 300MG [Suspect]
     Dosage: 1200 MG, UNK
     Route: 042
     Dates: start: 20120925
  3. CIPROFLOXACINE [Concomitant]
     Indication: PERITONITIS
     Dosage: 500 MG, QD
     Route: 048
     Dates: start: 201203
  4. METRONIDAZOLE [Concomitant]
     Indication: BETA HAEMOLYTIC STREPTOCOCCAL INFECTION
  5. CEFTRIAXONE [Suspect]
     Indication: BETA HAEMOLYTIC STREPTOCOCCAL INFECTION
     Route: 042

REACTIONS (1)
  - Peritonitis [Unknown]
